FAERS Safety Report 7556253-4 (Version None)
Quarter: 2011Q2

REPORT INFORMATION
  Report Type: 
  Country: None (occurrence: None)
  Receive Date: 20110620
  Receipt Date: 20110615
  Transmission Date: 20111010
  Serious: No
  Sender: FDA-Public Use
  Company Number: US-PFIZER INC-2011113655

PATIENT
  Sex: Female
  Weight: 65.76 kg

DRUGS (1)
  1. CALAN [Suspect]
     Indication: HYPERTENSION
     Dosage: 120 MG, 2X/DAY
     Route: 048
     Dates: start: 20110524, end: 20110525

REACTIONS (8)
  - MALAISE [None]
  - GASTROINTESTINAL PAIN [None]
  - FEELING ABNORMAL [None]
  - BLOOD CHOLESTEROL INCREASED [None]
  - PRODUCT TASTE ABNORMAL [None]
  - HYPOAESTHESIA ORAL [None]
  - PRODUCT ODOUR ABNORMAL [None]
  - ABDOMINAL PAIN UPPER [None]
